FAERS Safety Report 4416082-7 (Version None)
Quarter: 2004Q3

REPORT INFORMATION
  Report Type: 
  Country: None (occurrence: None)
  Receive Date: 20040802
  Receipt Date: 20040719
  Transmission Date: 20050211
  Serious: Yes (Hospitalization)
  Sender: FDA-Public Use
  Company Number: 2004048793

PATIENT
  Age: 30 Year
  Sex: Female

DRUGS (3)
  1. RELPAX [Suspect]
     Indication: HEADACHE
     Dosage: 40 MG (40 MG), ORAL
     Route: 048
     Dates: start: 20040313, end: 20040313
  2. ZOLOFT [Suspect]
     Indication: ILL-DEFINED DISORDER
     Dosage: 100 MG (100 MG, 1 IN 1 D), ORAL
     Route: 048
  3. MIGRALGINE (AMYLOCAINE HYDROCHLORIDE, CAFFEINE, CODEINE, PHENAZONE) [Suspect]
     Indication: HEADACHE
     Dosage: ORAL
     Route: 048
     Dates: start: 20040313, end: 20040313

REACTIONS (1)
  - CONVULSION [None]
